FAERS Safety Report 7614085 (Version 3)
Quarter: 2014Q2

REPORT INFORMATION
  Report Type: Spontaneous
  Country: US (occurrence: US)
  Receive Date: 20101001
  Receipt Date: 20140520
  Transmission Date: 20141212
  Serious: Yes (Hospitalization, Other)
  Sender: FDA-Public Use
  Company Number: US-AMGEN-QUU437570

PATIENT
  Age: 80 Year
  Sex: Male
  Weight: 85.4 kg

DRUGS (14)
  1. ARANESP [Suspect]
     Indication: ANAEMIA OF MALIGNANT DISEASE
     Dosage: 500 MUG, UNK
     Route: 058
     Dates: start: 20100419
  2. RITUXIMAB [Concomitant]
     Dosage: 375 MG/M2, UNK
     Route: 042
     Dates: start: 20100208
  3. BENDAMUSTINE [Concomitant]
     Dosage: 90 MG/M2, UNK
     Route: 042
  4. DIPHENHYDRAMINE HYDROCHLORIDE [Concomitant]
     Dosage: 25 MG, UNK
     Route: 042
  5. CYCLOSPORINE [Concomitant]
     Dosage: 100 MG, BID
     Route: 048
     Dates: start: 20100604
  6. METHYLPREDNISOLONE [Concomitant]
     Dosage: 24 MG, UNK
     Route: 048
     Dates: start: 20100907
  7. CYCLOPHOSPHAMIDE [Concomitant]
     Dosage: 100 MG, UNK
     Route: 048
     Dates: start: 20100909
  8. SIMVASTATIN [Concomitant]
     Dosage: 20 MG, QD
  9. LORAZEPAM [Concomitant]
     Dosage: 1 MG, PRN
  10. OMEPRAZOLE [Concomitant]
     Dosage: 20 MG, QD
  11. METFORMIN HYDROCHLORIDE [Concomitant]
     Dosage: 1000 MG, BID
  12. LEVOTHRYROXINE SODIUM [Concomitant]
     Dosage: 175 MUG, QD
  13. FINASTERIDE [Concomitant]
     Dosage: 5 MG, QD
  14. CENTRUM SILVER [Concomitant]
     Dosage: UNK UNK, QD

REACTIONS (4)
  - Anaemia [Unknown]
  - Confusional state [Unknown]
  - Aplasia pure red cell [Not Recovered/Not Resolved]
  - Headache [Unknown]
